FAERS Safety Report 14034632 (Version 1)
Quarter: 2017Q4

REPORT INFORMATION
  Report Type: Spontaneous
  Country: US (occurrence: US)
  Receive Date: 20171003
  Receipt Date: 20171003
  Transmission Date: 20180321
  Serious: Yes (Death, Other)
  Sender: FDA-Public Use
  Company Number: US-EAGLE PHARMACEUTICALS, INC.-US-2017EAG000130

PATIENT
  Sex: Female

DRUGS (6)
  1. BENDEKA [Suspect]
     Active Substance: BENDAMUSTINE HYDROCHLORIDE
     Dosage: 90MG/KG, UNK, CYCLE 2 (21 DAYS)
  2. BENDEKA [Suspect]
     Active Substance: BENDAMUSTINE HYDROCHLORIDE
     Dosage: 90MG/KG, UNK, CYCLE 3 (21 DAYS)
  3. RITUXAN [Concomitant]
     Active Substance: RITUXIMAB
     Indication: LYMPHOMA
     Dosage: UNK
     Route: 065
  4. BENDEKA [Suspect]
     Active Substance: BENDAMUSTINE HYDROCHLORIDE
     Indication: LYMPHOMA
     Dosage: 90 MG/KG, UNK, CYCLE 1 (21 DAYS)
  5. BENDEKA [Suspect]
     Active Substance: BENDAMUSTINE HYDROCHLORIDE
     Dosage: 90MG/KG, UNK, CYCLE 4 (21 DAYS)
  6. BENDEKA [Suspect]
     Active Substance: BENDAMUSTINE HYDROCHLORIDE
     Dosage: 90MG/KG, UNK, CYCLE 5 (21 DAYS)

REACTIONS (6)
  - Pyrexia [Recovered/Resolved]
  - Pancytopenia [Unknown]
  - Failure to thrive [Unknown]
  - Lung infection [Fatal]
  - Organ failure [Unknown]
  - Abdominal pain [Unknown]
